FAERS Safety Report 13286459 (Version 1)
Quarter: 2017Q1

REPORT INFORMATION
  Report Type: Spontaneous
  Country: US (occurrence: US)
  Receive Date: 20170302
  Receipt Date: 20170302
  Transmission Date: 20170428
  Serious: Yes (Hospitalization)
  Sender: FDA-Public Use
  Company Number: US-ELI_LILLY_AND_COMPANY-US201702010438

PATIENT
  Age: 69 Year
  Sex: Female

DRUGS (2)
  1. FORTEO [Suspect]
     Active Substance: TERIPARATIDE
     Indication: OSTEOPOROSIS
     Dosage: UNK, QD
     Route: 065
     Dates: start: 201610, end: 20170104
  2. FORTEO [Suspect]
     Active Substance: TERIPARATIDE
     Indication: PLASMA CELL MYELOMA

REACTIONS (6)
  - Mobility decreased [Unknown]
  - White blood cell count decreased [Recovering/Resolving]
  - Oedema peripheral [Unknown]
  - Gait disturbance [Not Recovered/Not Resolved]
  - Staphylococcal infection [Recovering/Resolving]
  - Arthralgia [Recovering/Resolving]

NARRATIVE: CASE EVENT DATE: 201610
